FAERS Safety Report 26042703 (Version 1)
Quarter: 2025Q4

REPORT INFORMATION
  Report Type: Spontaneous
  Country: US (occurrence: US)
  Receive Date: 20251113
  Receipt Date: 20251113
  Transmission Date: 20260119
  Serious: No
  Sender: KYOWA
  Company Number: US-KYOWAKIRIN-2025KK021731

PATIENT

DRUGS (1)
  1. CRYSVITA [Suspect]
     Active Substance: BUROSUMAB-TWZA
     Indication: Hypophosphataemia
     Dosage: UNK, 1X/6WEEKS (3-4 MONTH AGO (JULY/AUG  2025))
     Route: 058
     Dates: start: 2025

REACTIONS (3)
  - Injection site reaction [Recovered/Resolved]
  - Off label use [Not Recovered/Not Resolved]
  - Off label use [Not Recovered/Not Resolved]

NARRATIVE: CASE EVENT DATE: 20250101
